FAERS Safety Report 6680848-3 (Version None)
Quarter: 2010Q2

REPORT INFORMATION
  Report Type: 
  Country: None (occurrence: None)
  Receive Date: 20100414
  Receipt Date: 20100409
  Transmission Date: 20101027
  Serious: Yes (Other)
  Sender: FDA-Public Use
  Company Number: FR-ELI_LILLY_AND_COMPANY-FR201004002909

PATIENT
  Age: 5 Year
  Sex: Female

DRUGS (9)
  1. GEMCITABINE HCL [Suspect]
     Indication: NEUROBLASTOMA
     Dosage: 1G/M2, WEEKLY (1/W)
     Route: 065
  2. GEMCITABINE HCL [Suspect]
     Dosage: UNK, UNKNOWN
     Route: 065
  3. CYCLOPHOSPHAMIDE [Concomitant]
     Indication: NEUROBLASTOMA
     Dosage: UNK, DAILY (1/D)
     Route: 065
  4. VINORELBINE [Concomitant]
     Indication: NEUROBLASTOMA
     Dosage: UNK, WEEKLY (1/W)
     Route: 065
  5. ETOPOSIDE [Concomitant]
     Indication: NEUROBLASTOMA
     Dosage: UNK, UNKNOWN
     Route: 048
  6. TEMOZOLOMIDE [Concomitant]
     Indication: NEUROBLASTOMA
     Dosage: 150 MG/M2, FOR 5 DAYS
     Route: 048
  7. TEMOZOLOMIDE [Concomitant]
     Dosage: UNK, OTHER
     Route: 048
  8. TEMOZOLOMIDE [Concomitant]
     Dosage: UNK, UNKNOWN
     Route: 048
  9. TEMOZOLOMIDE [Concomitant]
     Dosage: UNK, UNKNOWN
     Route: 048

REACTIONS (5)
  - ANAEMIA [None]
  - HEPATIC FUNCTION ABNORMAL [None]
  - NEUTROPENIA [None]
  - THROMBOCYTOPENIA [None]
  - TUMOUR LYSIS SYNDROME [None]
